FAERS Safety Report 19939712 (Version 1)
Quarter: 2021Q4

REPORT INFORMATION
  Report Type: Spontaneous
  Country: US (occurrence: US)
  Receive Date: 20211011
  Receipt Date: 20211011
  Transmission Date: 20220303
  Serious: No
  Sender: FDA-Public Use
  Company Number: US-SA-SAC20211006000283

PATIENT
  Age: 36 Year
  Sex: Female

DRUGS (6)
  1. DUPIXENT [Suspect]
     Active Substance: DUPILUMAB
     Indication: Staphylococcal scalded skin syndrome
     Dosage: 300 MG, QOW
     Route: 058
     Dates: start: 20180801
  2. NUVARING [Concomitant]
     Active Substance: ETHINYL ESTRADIOL\ETONOGESTREL
  3. ELIDEL [Concomitant]
     Active Substance: PIMECROLIMUS
  4. VALACYCLOVIR [Concomitant]
     Active Substance: VALACYCLOVIR HYDROCHLORIDE
  5. HALOBETASOL PROPIONATE [Concomitant]
     Active Substance: HALOBETASOL PROPIONATE
  6. MULTIVITAMIN GUMMY BEARS [Concomitant]

REACTIONS (4)
  - Dry eye [Unknown]
  - Vision blurred [Unknown]
  - Eye irritation [Unknown]
  - Product use in unapproved indication [Unknown]

NARRATIVE: CASE EVENT DATE: 20180801
